FAERS Safety Report 13980598 (Version 2)
Quarter: 2017Q4

REPORT INFORMATION
  Report Type: Report from Study
  Country: None (occurrence: CA)
  Receive Date: 20170918
  Receipt Date: 20171019
  Transmission Date: 20180321
  Serious: Yes (Hospitalization, Other)
  Sender: FDA-Public Use
  Company Number: CA-ABBVIE-17K-028-2100801-00

PATIENT
  Sex: Female

DRUGS (1)
  1. HUMIRA [Suspect]
     Active Substance: ADALIMUMAB
     Indication: CROHN^S DISEASE
     Route: 058
     Dates: start: 20120718, end: 20161115

REACTIONS (12)
  - Multiple sclerosis [Unknown]
  - Bone disorder [Unknown]
  - Balance disorder [Not Recovered/Not Resolved]
  - Arthritis [Not Recovered/Not Resolved]
  - Spinal compression fracture [Recovering/Resolving]
  - Ligament sprain [Unknown]
  - Nuclear magnetic resonance imaging brain abnormal [Not Recovered/Not Resolved]
  - Fall [Recovered/Resolved]
  - Plantar fasciitis [Not Recovered/Not Resolved]
  - Foot fracture [Not Recovered/Not Resolved]
  - Bursitis [Not Recovered/Not Resolved]
  - Nuclear magnetic resonance imaging thoracic abnormal [Not Recovered/Not Resolved]

NARRATIVE: CASE EVENT DATE: 2017
